FAERS Safety Report 9130389 (Version 2)
Quarter: 2013Q3

REPORT INFORMATION
  Report Type: Spontaneous
  Country: JP (occurrence: JP)
  Receive Date: 20130301
  Receipt Date: 20130702
  Transmission Date: 20140515
  Serious: Yes (Hospitalization)
  Sender: FDA-Public Use
  Company Number: JP-AMGEN-JPNSP2013013747

PATIENT
  Age: 70 Year
  Sex: Male

DRUGS (6)
  1. VECTIBIX [Suspect]
     Indication: COLON CANCER
     Dosage: UNK
     Route: 041
  2. FLUOROURACIL [Concomitant]
     Indication: COLON CANCER
     Dosage: UNK UNK, Q2WK
     Route: 042
  3. CALCIUM LEVOFOLINATE [Concomitant]
     Indication: COLON CANCER
     Dosage: UNK
     Route: 041
  4. HIRUDOID                           /00723701/ [Concomitant]
     Indication: PROPHYLAXIS
     Dosage: UNK, APPLIED 2 TO 3 TIMES/DAY
     Route: 062
  5. MYSER                              /01249201/ [Concomitant]
     Indication: PROPHYLAXIS
     Dosage: UNK
     Route: 062
  6. LOCOID [Concomitant]
     Indication: PROPHYLAXIS
     Dosage: UNK, APPLIED TO THE FACE AT ONSET OF ERUPTION
     Route: 062

REACTIONS (2)
  - Ileus [Unknown]
  - Body tinea [Recovering/Resolving]
